FAERS Safety Report 22604001 (Version 1)
Quarter: 2023Q2

REPORT INFORMATION
  Report Type: Spontaneous
  Country: DE (occurrence: DE)
  Receive Date: 20230615
  Receipt Date: 20230615
  Transmission Date: 20230722
  Serious: Yes (Life-Threatening, Hospitalization, Other)
  Sender: FDA-Public Use
  Company Number: DE-BRISTOL-MYERS SQUIBB COMPANY-2023-082103

PATIENT
  Age: 70 Year
  Sex: Male

DRUGS (2)
  1. OPDIVO [Suspect]
     Active Substance: NIVOLUMAB
     Indication: Metastatic malignant melanoma
     Dosage: DOSE : NIVOLUMAB 1M/KG + IPILIMUMAB 3;     FREQ : EVERY 3 WEEKS FOR 4 CYCLES
     Dates: start: 202210, end: 20230104
  2. YERVOY [Suspect]
     Active Substance: IPILIMUMAB
     Indication: Metastatic malignant melanoma
     Dates: start: 202210, end: 20230104

REACTIONS (7)
  - Immune-mediated enterocolitis [Recovered/Resolved]
  - Immune-mediated hepatitis [Recovered/Resolved]
  - Hypokalaemia [Unknown]
  - Acute kidney injury [Unknown]
  - Respiratory acidosis [Unknown]
  - Cytomegalovirus colitis [Recovered/Resolved]
  - Ventricular extrasystoles [Unknown]

NARRATIVE: CASE EVENT DATE: 20221101
